FAERS Safety Report 19840558 (Version 1)
Quarter: 2021Q3

REPORT INFORMATION
  Report Type: Spontaneous
  Country: US (occurrence: US)
  Receive Date: 20210916
  Receipt Date: 20210916
  Transmission Date: 20211014
  Serious: Yes (Disabling)
  Sender: FDA-Public Use
  Company Number: None

PATIENT
  Age: 3 Year
  Sex: Male
  Weight: 18 kg

DRUGS (2)
  1. FLUOCINOLONE 0.01% SOLUTION [Suspect]
     Active Substance: FLUOCINOLONE ACETONIDE
     Indication: ECZEMA
     Route: 061
     Dates: start: 20190815, end: 20200912
  2. HYDROCORTISONE 1% [Suspect]
     Active Substance: HYDROCORTISONE
     Indication: ECZEMA
     Route: 061
     Dates: start: 20170615, end: 20200912

REACTIONS (7)
  - Asthma [None]
  - Scratch [None]
  - Drug withdrawal syndrome [None]
  - Drug ineffective [None]
  - Hypersensitivity [None]
  - Pruritus [None]
  - Food allergy [None]

NARRATIVE: CASE EVENT DATE: 20200912
